FAERS Safety Report 7528996-X (Version None)
Quarter: 2011Q2

REPORT INFORMATION
  Report Type: 
  Country: None (occurrence: None)
  Receive Date: 20110607
  Receipt Date: 20110523
  Transmission Date: 20111010
  Serious: No
  Sender: FDA-Public Use
  Company Number: US-B.I. PHARMACEUTICALS,INC./RIDGEFIELD-2011-BP-13818BP

PATIENT
  Age: 59 Year
  Sex: Female

DRUGS (9)
  1. PREDNISONE [Concomitant]
     Indication: PNEUMONIA
     Route: 048
     Dates: start: 20110514
  2. PRILOSEC [Concomitant]
     Indication: GASTROOESOPHAGEAL REFLUX DISEASE
     Dosage: 20 MG
     Route: 048
     Dates: start: 20100101
  3. OXYGEN [Concomitant]
     Indication: PNEUMONIA
     Dates: start: 20110501
  4. TEMAZEPAM [Concomitant]
     Indication: INSOMNIA
     Dosage: 15 MG
     Route: 048
     Dates: start: 20020101
  5. SPIRIVA [Suspect]
     Indication: CHRONIC OBSTRUCTIVE PULMONARY DISEASE
     Dosage: 18 MCG
     Route: 055
     Dates: start: 20110514
  6. PROAIR HFA [Concomitant]
     Indication: CHRONIC OBSTRUCTIVE PULMONARY DISEASE
  7. NORCO [Concomitant]
     Indication: BACK PAIN
     Route: 048
     Dates: start: 20050101
  8. LORAZEPAM [Concomitant]
     Indication: ANXIETY
     Dosage: 0.15 MG
     Route: 048
     Dates: start: 20100101
  9. PROAIR HFA [Concomitant]
     Indication: PNEUMONIA
     Dosage: 4 PUF
     Route: 055
     Dates: start: 20110501

REACTIONS (2)
  - GLOSSODYNIA [None]
  - DRY MOUTH [None]
